FAERS Safety Report 8036775-2 (Version None)
Quarter: 2012Q1

REPORT INFORMATION
  Report Type: 
  Country: None (occurrence: None)
  Receive Date: 20120111
  Receipt Date: 20120102
  Transmission Date: 20120608
  Serious: Yes (Hospitalization)
  Sender: FDA-Public Use
  Company Number: IT-NOVOPROD-340074

PATIENT

DRUGS (10)
  1. LANTUS [Suspect]
     Dosage: 12 IU, QD
     Route: 058
  2. AMLODIPINA                         /00972401/ [Concomitant]
     Dosage: 5 MG, QD
     Route: 048
  3. VALSARTAN [Concomitant]
     Dosage: 160 MG, QD
     Route: 048
  4. CRESTOR [Concomitant]
     Dosage: 10 MG, QD
     Route: 048
  5. NOVORAPID PENFILL [Suspect]
     Dosage: 30 IU (10 IU + 10 IU +10 IU), QD
     Route: 058
  6. METFORMIN HCL [Suspect]
     Indication: DIABETES MELLITUS
     Dosage: 1000 MG, QD
     Route: 048
     Dates: start: 20051021, end: 20111021
  7. LASIX [Concomitant]
     Dosage: 25 MG, QD
     Route: 048
  8. ASPIRIN [Concomitant]
     Dosage: 100 MG, QD
     Route: 048
  9. NOVORAPID PENFILL [Suspect]
     Indication: DIABETES MELLITUS
     Dosage: 48 IU ((16 IU+16 IU+16 IU)), QD
     Route: 058
     Dates: start: 20051021
  10. LANTUS [Suspect]
     Indication: DIABETES MELLITUS
     Dosage: 20 IU, QD
     Route: 058
     Dates: start: 20091021

REACTIONS (2)
  - HYPOGLYCAEMIA [None]
  - HYPERHIDROSIS [None]
